FAERS Safety Report 5105472-5 (Version None)
Quarter: 2006Q3

REPORT INFORMATION
  Report Type: 
  Country: None (occurrence: None)
  Receive Date: 20060915
  Receipt Date: 20060808
  Transmission Date: 20061208
  Serious: Yes (Life-Threatening, Hospitalization, Disabling, Other)
  Sender: FDA-Public Use
  Company Number: US-GLAXOSMITHKLINE-A0615791A

PATIENT
  Age: 69 Year
  Sex: Female
  Weight: 71.8 kg

DRUGS (10)
  1. AVANDARYL [Suspect]
     Dosage: 1TAB TWICE PER DAY
     Route: 048
     Dates: start: 20060726, end: 20060728
  2. ALEVE (CAPLET) [Concomitant]
     Dosage: 2CAPL TWICE PER DAY
  3. METOPROLOL [Concomitant]
     Dosage: 25MG TWICE PER DAY
  4. FUROSEMIDE [Concomitant]
     Dosage: 40MG TWICE PER DAY
  5. PREDNISONE TAB [Concomitant]
     Dosage: 5MG AT NIGHT
  6. QUINAPRIL [Concomitant]
     Dosage: 40MG PER DAY
  7. METHOTREXATE [Concomitant]
     Dosage: 2.5MG AS DIRECTED
  8. PROTONIX [Concomitant]
     Dosage: 40MG PER DAY
  9. PROCRIT [Concomitant]
  10. IMODIUM [Concomitant]

REACTIONS (2)
  - BLOOD GLUCOSE DECREASED [None]
  - HYPOGLYCAEMIA [None]
